FAERS Safety Report 7889360-7 (Version None)
Quarter: 2011Q4

REPORT INFORMATION
  Report Type: 
  Country: None (occurrence: None)
  Receive Date: 20111101
  Receipt Date: 20111025
  Transmission Date: 20120403
  Serious: Yes (Other)
  Sender: FDA-Public Use
  Company Number: GER/UKI/11/0021706

PATIENT
  Age: 52 Year
  Sex: Male

DRUGS (6)
  1. ATORVASTATIN [Concomitant]
  2. BISOPROLOL [Concomitant]
  3. RAMIPRIL [Concomitant]
  4. CLOPIDOGREL [Suspect]
     Indication: STENT PLACEMENT
     Dosage: 75 MG, 1 IN 1 D, ORAL
     Route: 048
     Dates: start: 20110901, end: 20110922
  5. CLOPIDOGREL [Suspect]
     Indication: ACUTE MYOCARDIAL INFARCTION
     Dosage: 75 MG, 1 IN 1 D, ORAL
     Route: 048
     Dates: start: 20110901, end: 20110922
  6. ASPIRIN [Concomitant]

REACTIONS (6)
  - ARTHRALGIA [None]
  - THROAT TIGHTNESS [None]
  - ARTHRITIS [None]
  - RASH ERYTHEMATOUS [None]
  - HYPOTENSION [None]
  - MALAISE [None]
